FAERS Safety Report 6035086-4 (Version None)
Quarter: 2009Q1

REPORT INFORMATION
  Report Type: 
  Country: None (occurrence: None)
  Receive Date: 20090112
  Receipt Date: 20090107
  Transmission Date: 20090719
  Serious: Yes (Other)
  Sender: FDA-Public Use
  Company Number: KP-ROXANE LABORATORIES, INC.-2009-RO-00021RO

PATIENT
  Age: 63 Year
  Sex: Male

DRUGS (7)
  1. AZATHIOPRINE [Suspect]
     Indication: RHEUMATOID ARTHRITIS
  2. DEFLAZACORT [Suspect]
     Indication: RHEUMATOID ARTHRITIS
  3. LIDOCAINE AND EPINEPHRINE [Suspect]
     Indication: NERVE BLOCK
  4. SODIUM HYPOCHLORITE [Suspect]
     Indication: THERAPEUTIC PROCEDURE
  5. LEVOFLOXACIN [Concomitant]
     Indication: ANTIBIOTIC THERAPY
  6. ANTICOAGULANT ETHYLENEDIAMINE TETRAACETIC ACID (EDTA) [Concomitant]
     Indication: DENTAL CLEANING
  7. SODIUM CHLORIDE [Concomitant]
     Indication: THERAPEUTIC PROCEDURE

REACTIONS (4)
  - PULPITIS DENTAL [None]
  - PURULENT DISCHARGE [None]
  - RESORPTION BONE INCREASED [None]
  - TOOTHACHE [None]
